FAERS Safety Report 9938072 (Version 1)
Quarter: 2014Q1

REPORT INFORMATION
  Report Type: Report from Study
  Country: US (occurrence: US)
  Receive Date: 20140303
  Receipt Date: 20140303
  Transmission Date: 20141002
  Serious: Yes (Other)
  Sender: FDA-Public Use
  Company Number: US-ROCHE-1354341

PATIENT
  Sex: Female

DRUGS (5)
  1. AVASTIN [Suspect]
     Indication: RETINAL VEIN OCCLUSION
     Dosage: LEFT EYE
     Route: 050
     Dates: start: 20130314
  2. AVASTIN [Suspect]
     Indication: RETINAL VEIN OCCLUSION
  3. AVASTIN [Suspect]
     Indication: CYSTOID MACULAR OEDEMA
  4. LIDOCAINE [Concomitant]
     Route: 065
  5. MYDRIACYL [Concomitant]
     Route: 065

REACTIONS (3)
  - Eye irritation [Unknown]
  - Vitreous floaters [Unknown]
  - Off label use [Unknown]
